FAERS Safety Report 7113349-9 (Version None)
Quarter: 2010Q4

REPORT INFORMATION
  Report Type: 
  Country: None (occurrence: None)
  Receive Date: 20101119
  Receipt Date: 20101115
  Transmission Date: 20110411
  Serious: Yes (Death)
  Sender: FDA-Public Use
  Company Number: HR-JNJFOC-20100509996

PATIENT
  Sex: Female

DRUGS (1)
  1. RISPOLEPT CONSTA [Suspect]
     Indication: SCHIZOPHRENIA
     Route: 065

REACTIONS (3)
  - COMPLETED SUICIDE [None]
  - FALL [None]
  - SCHIZOPHRENIA [None]
